FAERS Safety Report 18147342 (Version 17)
Quarter: 2025Q2

REPORT INFORMATION
  Report Type: Report from Study
  Country: US (occurrence: US)
  Receive Date: 20200814
  Receipt Date: 20250520
  Transmission Date: 20250717
  Serious: Yes (Hospitalization, Other)
  Sender: TAKEDA
  Company Number: US-SHIRE-US202025919

PATIENT
  Sex: Female
  Weight: 100 kg

DRUGS (38)
  1. HUMAN IMMUNOGLOBULIN G\HYALURONIDASE RECOMBINANT HUMAN [Suspect]
     Active Substance: HUMAN IMMUNOGLOBULIN G\HYALURONIDASE (HUMAN RECOMBINANT)
     Indication: Immunodeficiency common variable
     Dosage: 40 GRAM, Q4WEEKS
     Dates: start: 20191122
  2. HUMAN IMMUNOGLOBULIN G\HYALURONIDASE RECOMBINANT HUMAN [Suspect]
     Active Substance: HUMAN IMMUNOGLOBULIN G\HYALURONIDASE (HUMAN RECOMBINANT)
     Dosage: 40 GRAM, Q4WEEKS
  3. CODEINE [Suspect]
     Active Substance: CODEINE
     Indication: Product used for unknown indication
  4. TYLENOL [Suspect]
     Active Substance: ACETAMINOPHEN
     Indication: Product used for unknown indication
  5. PREDNISONE [Concomitant]
     Active Substance: PREDNISONE
  6. DIPHENHYDRAMINE [Concomitant]
     Active Substance: DIPHENHYDRAMINE
  7. ELIQUIS [Concomitant]
     Active Substance: APIXABAN
  8. LEVOTHYROXINE SODIUM [Concomitant]
     Active Substance: LEVOTHYROXINE SODIUM
  9. ISOSORBIDE DINITRATE [Concomitant]
     Active Substance: ISOSORBIDE DINITRATE
  10. PFIZER-BIONTECH COVID-19 VACCINE [Concomitant]
     Active Substance: TOZINAMERAN
  11. EPINEPHRINE [Concomitant]
     Active Substance: EPINEPHRINE
  12. HYDRALAZINE HCL [Concomitant]
     Active Substance: HYDRALAZINE HYDROCHLORIDE
  13. FLUTICASONE PROPIONATE [Concomitant]
     Active Substance: FLUTICASONE PROPIONATE
  14. HUMALOG [Concomitant]
     Active Substance: INSULIN LISPRO
  15. OMEPRAZOLE [Concomitant]
     Active Substance: OMEPRAZOLE
  16. GABAPENTIN [Concomitant]
     Active Substance: GABAPENTIN
  17. ACETAMINOPHEN [Concomitant]
     Active Substance: ACETAMINOPHEN
  18. ATORVASTATIN CALCIUM [Concomitant]
     Active Substance: ATORVASTATIN CALCIUM
  19. VITAMIN D3 [Concomitant]
     Active Substance: CHOLECALCIFEROL
  20. LOSARTAN POTASSIUM [Concomitant]
     Active Substance: LOSARTAN POTASSIUM
  21. FISH OIL [Concomitant]
     Active Substance: FISH OIL
  22. LIDOCAINE [Concomitant]
     Active Substance: LIDOCAINE
  23. TYLENOL EXTRA STRENGTH [Concomitant]
     Active Substance: ACETAMINOPHEN
  24. SODIUM CHLORIDE [Concomitant]
     Active Substance: SODIUM CHLORIDE
  25. CHLORTHALIDONE [Concomitant]
     Active Substance: CHLORTHALIDONE
  26. AZELASTINE HYDROCHLORIDE [Concomitant]
     Active Substance: AZELASTINE HYDROCHLORIDE
  27. LANTUS [Concomitant]
     Active Substance: INSULIN GLARGINE
  28. MOMETASONE FUROATE [Concomitant]
     Active Substance: MOMETASONE FUROATE
  29. LOSARTAN [Concomitant]
     Active Substance: LOSARTAN
  30. COMBIVENT RESPIMAT [Concomitant]
     Active Substance: ALBUTEROL SULFATE\IPRATROPIUM BROMIDE
  31. RITUXAN [Concomitant]
     Active Substance: RITUXIMAB
  32. AMLODIPINE [Concomitant]
     Active Substance: AMLODIPINE BESYLATE
  33. Pelo libre [Concomitant]
  34. Covid-19 vaccine [Concomitant]
  35. CALCIUM [Concomitant]
     Active Substance: CALCIUM
  36. AMLODIPINE BESYLATE [Concomitant]
     Active Substance: AMLODIPINE BESYLATE
  37. JARDIANCE [Concomitant]
     Active Substance: EMPAGLIFLOZIN
  38. DIPHENHYDRAMINE HYDROCHLORIDE [Concomitant]
     Active Substance: DIPHENHYDRAMINE HYDROCHLORIDE

REACTIONS (20)
  - Pericardial effusion [Unknown]
  - Lower respiratory tract infection [Recovered/Resolved]
  - Hypertension [Unknown]
  - Product dose omission in error [Unknown]
  - Tooth infection [Unknown]
  - Skin bacterial infection [Unknown]
  - Renal disorder [Unknown]
  - Weight increased [Unknown]
  - Urinary tract infection [Unknown]
  - Seasonal allergy [Unknown]
  - Infusion related reaction [Unknown]
  - Sciatica [Unknown]
  - Pain [Unknown]
  - Constipation [Unknown]
  - Inability to afford medication [Unknown]
  - Product dose omission issue [Unknown]
  - Rhinorrhoea [Unknown]
  - Nausea [Unknown]
  - Vomiting [Unknown]
  - Fatigue [Unknown]
